FAERS Safety Report 25096565 (Version 2)
Quarter: 2025Q1

REPORT INFORMATION
  Report Type: Report from Study
  Country: IE (occurrence: IE)
  Receive Date: 20250319
  Receipt Date: 20250321
  Transmission Date: 20250409
  Serious: No
  Sender: NOVARTIS
  Company Number: IE-002147023-NVSC2025IE044872

PATIENT
  Age: 36 Year
  Sex: Female

DRUGS (1)
  1. COSENTYX [Suspect]
     Active Substance: SECUKINUMAB
     Indication: Psoriatic arthropathy
     Dosage: 150 MG, QW (X 5 WEEKS THEN MONTHLY)
     Route: 058
     Dates: start: 20250225

REACTIONS (9)
  - Viral infection [Unknown]
  - Oxygen saturation decreased [Unknown]
  - Cough [Unknown]
  - Headache [Unknown]
  - Malaise [Unknown]
  - Oropharyngeal pain [Unknown]
  - Feeling abnormal [Recovering/Resolving]
  - Dizziness postural [Unknown]
  - Chest discomfort [Unknown]

NARRATIVE: CASE EVENT DATE: 20250313
